FAERS Safety Report 5050574-5 (Version None)
Quarter: 2006Q3

REPORT INFORMATION
  Report Type: 
  Country: None (occurrence: None)
  Receive Date: 20060713
  Receipt Date: 20060629
  Transmission Date: 20061208
  Serious: Yes (Life-Threatening, Hospitalization)
  Sender: FDA-Public Use
  Company Number: JP-JPN-A200602387

PATIENT
  Sex: Male

DRUGS (2)
  1. PAXIL [Suspect]
     Indication: OBSESSIVE-COMPULSIVE DISORDER
     Route: 048
     Dates: start: 20060516
  2. DEPAS [Concomitant]
     Route: 048
     Dates: start: 20060601

REACTIONS (1)
  - SUICIDE ATTEMPT [None]
